FAERS Safety Report 7402509-5 (Version None)
Quarter: 2011Q2

REPORT INFORMATION
  Report Type: 
  Country: None (occurrence: None)
  Receive Date: 20110408
  Receipt Date: 20110328
  Transmission Date: 20111010
  Serious: Yes (Other)
  Sender: FDA-Public Use
  Company Number: US-JNJFOC-20110401246

PATIENT
  Sex: Female
  Weight: 47.63 kg

DRUGS (3)
  1. ELMIRON [Suspect]
     Indication: CYSTITIS INTERSTITIAL
     Route: 048
  2. ZEBETA [Concomitant]
     Indication: CARDIAC DISORDER
     Route: 048
  3. DIGOXIN [Concomitant]
     Indication: ARRHYTHMIA
     Route: 048

REACTIONS (6)
  - THYROID CYST [None]
  - SINUS TACHYCARDIA [None]
  - VASOCONSTRICTION [None]
  - VOLUME BLOOD DECREASED [None]
  - THYROID MASS [None]
  - RED BLOOD CELL COUNT DECREASED [None]
